FAERS Safety Report 18253309 (Version 2)
Quarter: 2020Q4

REPORT INFORMATION
  Report Type: Spontaneous
  Country: US (occurrence: US)
  Receive Date: 20200910
  Receipt Date: 20201117
  Transmission Date: 20210113
  Serious: Yes (Other)
  Sender: FDA-Public Use
  Company Number: US-TEVA-2020-US-1827065

PATIENT
  Sex: Female

DRUGS (30)
  1. LEVOTHYROXIN [Concomitant]
     Active Substance: LEVOTHYROXINE
     Dosage: 50 MICROGRAM DAILY; 0.5MG, 1 PER DAY
     Dates: start: 20140215, end: 20160619
  2. ALLOPURINOL. [Concomitant]
     Active Substance: ALLOPURINOL
     Indication: BLOOD URIC ACID
     Dosage: 300 MILLIGRAM DAILY; 300 MG, 1 TAB PER DAY
     Dates: start: 20100609, end: 20160321
  3. QSYMIA [Concomitant]
     Active Substance: PHENTERMINE HYDROCHLORIDE\TOPIRAMATE
     Dosage: 7.5- 46MG, 1 PER DAY
     Dates: start: 20130731, end: 20130916
  4. VALSARTAN/HYDROCHLOROTHIAZIDE MYLAN [Suspect]
     Active Substance: HYDROCHLOROTHIAZIDE\VALSARTAN
     Dosage: DOSAGE:: 160MG-12.5
     Route: 065
     Dates: start: 20130421, end: 20130721
  5. TRAMADOL. [Concomitant]
     Active Substance: TRAMADOL
     Indication: PAIN
     Dosage: 2000 MILLIGRAM DAILY; 50MG, 4 TABS PER DAY
     Dates: start: 20101123, end: 20160423
  6. ALPRAZOLAM. [Concomitant]
     Active Substance: ALPRAZOLAM
     Dosage: .5 MILLIGRAM DAILY; 0.5MG; 1 TAB PER DAY
     Dates: start: 20180513, end: 20200520
  7. ALLOPURINOL. [Concomitant]
     Active Substance: ALLOPURINOL
     Indication: BLOOD URIC ACID
     Dosage: 300
     Dates: start: 20140727, end: 20160321
  8. FUROSEMIDE. [Concomitant]
     Active Substance: FUROSEMIDE
     Dosage: 40 MILLIGRAM DAILY; 20 MG, 2 PER DAY;
  9. QSYMIA [Concomitant]
     Active Substance: PHENTERMINE HYDROCHLORIDE\TOPIRAMATE
     Indication: OBESITY
     Dosage: 3.75-23MG, 1 PER DAY;
     Dates: start: 20130731, end: 20130916
  10. AZITHROMYCIN ANHYDROUS. [Concomitant]
     Active Substance: AZITHROMYCIN ANHYDROUS
     Indication: INFECTION
     Dosage: 500 MILLIGRAM DAILY; 250MG, 2 TAB PER DAY
     Dates: start: 20100210, end: 20120625
  11. LYRICA [Concomitant]
     Active Substance: PREGABALIN
     Indication: NEURALGIA
     Dosage: 25 MILLIGRAM
     Dates: start: 20150910, end: 20160321
  12. TRAMADOL. [Concomitant]
     Active Substance: TRAMADOL
     Dosage: 500 MILLIGRAM DAILY; 50MG, 1 TABS PER DAY
     Dates: start: 20110601, end: 20160423
  13. NEXIUM [Concomitant]
     Active Substance: ESOMEPRAZOLE MAGNESIUM
     Indication: GASTROOESOPHAGEAL REFLUX DISEASE
     Dosage: 40 MILLIGRAM DAILY; 40MG, 1 TAB PER DAY
     Dates: start: 20100125, end: 20100922
  14. OMEPRAZOLE DR [Concomitant]
     Active Substance: OMEPRAZOLE
     Dosage: 20 MILLIGRAM DAILY; 20 MG, 1 TAB PER DAY
     Dates: start: 20140224, end: 20141024
  15. CITALOPRAM [Concomitant]
     Active Substance: CITALOPRAM HYDROBROMIDE
     Indication: DEPRESSION
     Dosage: 40 MILLIGRAM DAILY; 40MG, 1 TAB PER DAY
     Dates: start: 20140224, end: 20171221
  16. VALSARTAN/HYDROCHLOROTHIAZIDE MYLAN [Suspect]
     Active Substance: HYDROCHLOROTHIAZIDE\VALSARTAN
     Indication: HYPERTENSION
     Dosage: DOSAGE:: 160MG-12.5
     Route: 065
     Dates: start: 20130722, end: 20140714
  17. FUROSEMIDE. [Concomitant]
     Active Substance: FUROSEMIDE
     Dosage: 40 MG, 1 PER DAY
  18. GABAPENTIN. [Concomitant]
     Active Substance: GABAPENTIN
     Indication: PAIN
     Dosage: 300 MILLIGRAM DAILY; 300MG, 1 TAB PER DAY
     Dates: start: 20100928, end: 20110407
  19. LEXAPRO [Concomitant]
     Active Substance: ESCITALOPRAM OXALATE
     Indication: DEPRESSION
     Dosage: 20 MILLIGRAM DAILY; 20MG, 1 TAB PER DAY
     Dates: start: 20100125, end: 20110212
  20. TIZANIDINE. [Concomitant]
     Active Substance: TIZANIDINE
     Indication: MUSCLE SPASMS
     Dosage: 4MG, 1-2 TS PER DAY
     Dates: start: 20091023, end: 20110312
  21. LEVOTHYROXIN [Concomitant]
     Active Substance: LEVOTHYROXINE
     Indication: HYPOTHYROIDISM
     Dosage: 75 MICROGRAM DAILY; 0.075MG, 1 TAB PER DAY
     Dates: start: 20100127, end: 20200512
  22. LEVOTHYROXIN [Concomitant]
     Active Substance: LEVOTHYROXINE
     Dosage: 75 MICROGRAM DAILY; 0.075MG, 1 TAB PER DAY
     Dates: start: 20140215, end: 20160619
  23. TIZANIDINE HCL [Concomitant]
     Active Substance: TIZANIDINE HYDROCHLORIDE
     Indication: MUSCLE SPASMS
     Dosage: 4 MILLIGRAM DAILY; 4MG, 1 TAB PER DAY
     Dates: start: 20140903, end: 20160721
  24. PROPOXYPHENE-N [Concomitant]
     Active Substance: PROPOXYPHENE HYDROCHLORIDE
     Indication: PAIN
     Dosage: 650TABS; 1 TAB PER DAY
     Dates: start: 20100125, end: 20110114
  25. PANTOPRAZOLE [Concomitant]
     Active Substance: PANTOPRAZOLE
     Indication: GASTROOESOPHAGEAL REFLUX DISEASE
     Dosage: 40 MILLIGRAM DAILY; 40MG, 1TAB PER DAY
     Dates: start: 20181015, end: 20200628
  26. ATORVASTATIN [Concomitant]
     Active Substance: ATORVASTATIN
     Indication: BLOOD CHOLESTEROL INCREASED
     Dosage: 10 MILLIGRAM DAILY; 10MG, 1 TAB PER DAY
     Dates: start: 20140217, end: 20160605
  27. ALPRAZOLAM. [Concomitant]
     Active Substance: ALPRAZOLAM
     Indication: ANXIETY
     Dosage: 1 MILLIGRAM DAILY; 1 MG, 1 TAB PER DAY
     Dates: start: 20180513, end: 20200520
  28. LEVOTHYROXIN [Concomitant]
     Active Substance: LEVOTHYROXINE
     Dosage: 50 MICROGRAM DAILY; 0.5MG, 1 PER DAY
     Dates: start: 20100127, end: 20200512
  29. LEXAPRO [Concomitant]
     Active Substance: ESCITALOPRAM OXALATE
     Indication: ANXIETY
  30. CITALOPRAM [Concomitant]
     Active Substance: CITALOPRAM HYDROBROMIDE
     Indication: DEPRESSION
     Dosage: 40 MILLIGRAM DAILY; 40MG, 1 TAB PER DAY
     Dates: start: 20120619, end: 20200628

REACTIONS (1)
  - Hepatic cancer [Unknown]
